FAERS Safety Report 24010219 (Version 1)
Quarter: 2024Q2

REPORT INFORMATION
  Report Type: Spontaneous
  Country: BR (occurrence: BR)
  Receive Date: 20240625
  Receipt Date: 20240625
  Transmission Date: 20240716
  Serious: Yes (Other)
  Sender: FDA-Public Use
  Company Number: BR-PFIZER INC-PV202400082063

PATIENT
  Age: 47 Year
  Sex: Female

DRUGS (6)
  1. XELJANZ [Suspect]
     Active Substance: TOFACITINIB CITRATE
     Dosage: UNK
     Dates: start: 202004, end: 202402
  2. METHOTREXATE [Concomitant]
     Active Substance: METHOTREXATE
     Dosage: 15 MG
  3. LEFLUNOMIDE [Concomitant]
     Active Substance: LEFLUNOMIDE
     Dosage: 20 MG
  4. HYDROCHLOROTHIAZIDE [Concomitant]
     Active Substance: HYDROCHLOROTHIAZIDE
     Dosage: 25 MG
  5. DULOXETINE [Concomitant]
     Active Substance: DULOXETINE
     Dosage: 60 MG
  6. DROSPIRENONE [Concomitant]
     Active Substance: DROSPIRENONE

REACTIONS (3)
  - Pulmonary embolism [Unknown]
  - Venous thrombosis [Unknown]
  - Thrombophlebitis [Unknown]
